FAERS Safety Report 5557327-X (Version None)
Quarter: 2007Q4

REPORT INFORMATION
  Report Type: 
  Country: None (occurrence: None)
  Receive Date: 20071214
  Receipt Date: 20071204
  Transmission Date: 20080405
  Serious: Yes (Hospitalization)
  Sender: FDA-Public Use
  Company Number: FR-ABBOTT-07P-056-0427219-00

PATIENT
  Sex: Male

DRUGS (11)
  1. ODRIK [Suspect]
     Indication: DRUG USE FOR UNKNOWN INDICATION
     Route: 048
  2. ODRIK [Suspect]
     Route: 048
  3. ODRIK [Suspect]
     Route: 048
  4. BISOPROLOL [Concomitant]
     Indication: DRUG USE FOR UNKNOWN INDICATION
     Route: 048
  5. ALFUZOSINE [Concomitant]
     Indication: DRUG USE FOR UNKNOWN INDICATION
  6. ATORVASTATIN CALCIUM [Concomitant]
     Indication: DRUG USE FOR UNKNOWN INDICATION
  7. FUROSEMIDE [Concomitant]
     Indication: DRUG USE FOR UNKNOWN INDICATION
  8. GLYCERYL TRINITRATE [Concomitant]
     Indication: DRUG USE FOR UNKNOWN INDICATION
  9. OXAZEPAM [Concomitant]
     Indication: DRUG USE FOR UNKNOWN INDICATION
  10. TIANEPTINE [Concomitant]
     Indication: DRUG USE FOR UNKNOWN INDICATION
  11. FLUINDIONE [Concomitant]
     Indication: DRUG USE FOR UNKNOWN INDICATION

REACTIONS (2)
  - PUSTULAR PSORIASIS [None]
  - PYREXIA [None]
